FAERS Safety Report 10538615 (Version 1)
Quarter: 2014Q4

REPORT INFORMATION
  Report Type: Spontaneous
  Country: US (occurrence: US)
  Receive Date: 20141023
  Receipt Date: 20141023
  Transmission Date: 20150529
  Serious: No
  Sender: FDA-Public Use
  Company Number: US-RECKITT BENCKISER PHARMACEUTICAL, INC-RB-65586-2014

PATIENT

DRUGS (2)
  1. TRAMADOL [Concomitant]
     Active Substance: TRAMADOL
     Indication: PAIN
     Dosage: DOSING DETAILS UNKNOWN
     Route: 048
  2. SUBOXONE [Suspect]
     Active Substance: BUPRENORPHINE HYDROCHLORIDE\NALOXONE HYDROCHLORIDE
     Indication: PAIN
     Dosage: SUBOXONE FILM; CUT AND SWALLOWED A PIECE OF UNKNOWN DOSE EVERY 2 WEEKS
     Route: 048
     Dates: start: 2014, end: 20140330

REACTIONS (5)
  - Substance abuse [Recovered/Resolved]
  - Incorrect route of drug administration [Recovered/Resolved]
  - Wrong technique in drug usage process [Recovered/Resolved]
  - Off label use [Recovered/Resolved]
  - Abdominal pain upper [Unknown]

NARRATIVE: CASE EVENT DATE: 2014
